FAERS Safety Report 13243091 (Version 1)
Quarter: 2017Q1

REPORT INFORMATION
  Report Type: Spontaneous
  Country: GR (occurrence: GR)
  Receive Date: 20170216
  Receipt Date: 20170216
  Transmission Date: 20170428
  Serious: Yes (Hospitalization, Other)
  Sender: FDA-Public Use
  Company Number: GR-MYLANLABS-2017M1009241

PATIENT

DRUGS (2)
  1. PROPAFENONE MYLAN [Suspect]
     Active Substance: PROPAFENONE
     Indication: PALPITATIONS
     Dosage: 1200 MG, TOTAL
  2. FLECAINIDE [Interacting]
     Active Substance: FLECAINIDE
     Indication: ATRIAL FIBRILLATION
     Dosage: UNK

REACTIONS (5)
  - Drug interaction [Unknown]
  - Chest discomfort [Unknown]
  - Arrhythmia [Recovered/Resolved]
  - Ventricular tachycardia [Recovered/Resolved]
  - Presyncope [Unknown]
